FAERS Safety Report 18539298 (Version 2)
Quarter: 2020Q4

REPORT INFORMATION
  Report Type: Spontaneous
  Country: US (occurrence: US)
  Receive Date: 20201124
  Receipt Date: 20201124
  Transmission Date: 20210114
  Serious: No
  Sender: FDA-Public Use
  Company Number: US-KERYX BIOPHARMACEUTICALS INC.-2020US007006

PATIENT
  Sex: Male
  Weight: 77.1 kg

DRUGS (1)
  1. AURYXIA [Suspect]
     Active Substance: TETRAFERRIC TRICITRATE DECAHYDRATE
     Indication: DIALYSIS
     Dosage: 1 GRAM (TABLET), 2-3 TIMES A DAY WITH MEALS
     Route: 048
     Dates: start: 20200723

REACTIONS (1)
  - Vomiting [Unknown]
